FAERS Safety Report 16219336 (Version 1)
Quarter: 2019Q2

REPORT INFORMATION
  Report Type: Spontaneous
  Country: CH (occurrence: CH)
  Receive Date: 20190419
  Receipt Date: 20190419
  Transmission Date: 20190711
  Serious: Yes (Hospitalization)
  Sender: FDA-Public Use
  Company Number: CH-MYLANLABS-2019M1037415

PATIENT
  Age: 75 Year
  Sex: Female

DRUGS (8)
  1. AURORIX [Suspect]
     Active Substance: MOCLOBEMIDE
     Indication: DEPRESSION
     Dosage: 300 MILLIGRAM
     Dates: start: 20181227, end: 20190108
  2. AURORIX [Suspect]
     Active Substance: MOCLOBEMIDE
     Dosage: 600 MILLIGRAM
     Dates: start: 20190108, end: 20190128
  3. ZOLPIDEM [Suspect]
     Active Substance: ZOLPIDEM\ZOLPIDEM TARTRATE
     Indication: INSOMNIA
     Dosage: UNK
     Dates: start: 20181218, end: 20190129
  4. OLANZAPINE. [Suspect]
     Active Substance: OLANZAPINE
     Indication: HALLUCINATION
     Dosage: UNK
     Dates: start: 20181211, end: 20190109
  5. LEPONEX [Suspect]
     Active Substance: CLOZAPINE
     Indication: HALLUCINATION
     Dosage: UNK
     Dates: start: 20190109, end: 20190203
  6. BRUFEN                             /00109201/ [Concomitant]
     Active Substance: IBUPROFEN
     Dosage: 1200 MILLIGRAM
     Dates: start: 20190110, end: 20190112
  7. CO-AMOXI [Concomitant]
     Active Substance: AMOXICILLIN\CLAVULANATE POTASSIUM
     Indication: PNEUMONIA
     Dosage: 2000 MILLIGRAM
     Dates: start: 20190107, end: 20190112
  8. DISTRANEURIN                       /00027502/ [Concomitant]
     Active Substance: CLOMETHIAZOLE
     Indication: INSOMNIA
     Dosage: UNK
     Dates: start: 20190114, end: 20190220

REACTIONS (3)
  - Dropped head syndrome [Recovered/Resolved]
  - Muscular weakness [Recovered/Resolved]
  - Neck pain [Recovered/Resolved]

NARRATIVE: CASE EVENT DATE: 20190107
